FAERS Safety Report 18931015 (Version 1)
Quarter: 2021Q1

REPORT INFORMATION
  Report Type: Spontaneous
  Country: DE (occurrence: DE)
  Receive Date: 20210223
  Receipt Date: 20210223
  Transmission Date: 20210420
  Serious: Yes (Other)
  Sender: FDA-Public Use
  Company Number: DE-BAUSCH-BL-2021-002097

PATIENT
  Age: 18 Year
  Sex: Male

DRUGS (7)
  1. HUMAN FACTOR VIII (INN) [Suspect]
     Active Substance: ANTIHEMOPHILIC FACTOR HUMAN
     Indication: IMMUNE TOLERANCE INDUCTION
     Dosage: HANNOVER PROTOCOL: 2X100 U/KG/D
     Route: 065
  2. HUMAN FACTOR VIII (INN) [Suspect]
     Active Substance: ANTIHEMOPHILIC FACTOR HUMAN
     Indication: ACQUIRED HAEMOPHILIA
     Dosage: HANNOVER PROTOCOL: 2X50 U/KG/D
     Route: 065
  3. CELLCEPT [Suspect]
     Active Substance: MYCOPHENOLATE MOFETIL\MYCOPHENOLATE MOFETIL HYDROCHLORIDE
     Indication: IMMUNE TOLERANCE INDUCTION
     Route: 065
  4. RITUXIMAB. [Suspect]
     Active Substance: RITUXIMAB
     Indication: IMMUNE TOLERANCE INDUCTION
     Dosage: HANNOVER PROTOCOL: 375 MG/M2/D; WEEKLY
     Route: 065
     Dates: start: 2006
  5. HUMAN IMMUNOGLOBULIN (INN) [Suspect]
     Active Substance: HUMAN IMMUNOGLOBULIN G
     Indication: IMMUNE TOLERANCE INDUCTION
     Dosage: HANNOVER PROTOCOL: DAY 3?4
     Route: 042
  6. DEXAMETHASONE. [Suspect]
     Active Substance: DEXAMETHASONE
     Indication: IMMUNE TOLERANCE INDUCTION
     Dosage: HANNOVER PROTOCOL: 2X12 MG/M2 (DAY 1?4)
     Route: 065
  7. RITUXIMAB. [Suspect]
     Active Substance: RITUXIMAB
     Dosage: HANNOVER PROTOCOL: 375 MG/M2/D; WEEKLY
     Route: 065
     Dates: start: 2010

REACTIONS (4)
  - Paronychia [Unknown]
  - Psychotic disorder [Unknown]
  - Sepsis [Unknown]
  - Therapy partial responder [Unknown]
